FAERS Safety Report 10628905 (Version 2)
Quarter: 2016Q2

REPORT INFORMATION
  Report Type: Spontaneous
  Country: US (occurrence: US)
  Receive Date: 20141205
  Receipt Date: 20160617
  Transmission Date: 20160815
  Serious: No
  Sender: FDA-Public Use
  Company Number: US-BRISTOL-MYERS SQUIBB COMPANY-21352331

PATIENT
  Sex: Female

DRUGS (2)
  1. KENALOG-40 [Suspect]
     Active Substance: TRIAMCINOLONE ACETONIDE
     Indication: PAIN
     Dosage: NO OF INJ:3 TIMES  2ND INJ ON 20MAR14  3RD INJ ON 15AUG14  5CC WITH 1% LIDOCAINE
     Route: 014
  2. KENALOG-40 [Suspect]
     Active Substance: TRIAMCINOLONE ACETONIDE
     Indication: INFLAMMATION

REACTIONS (6)
  - Pain [Unknown]
  - Hyposmia [Unknown]
  - Drug ineffective [Unknown]
  - Ageusia [Unknown]
  - Muscle spasms [Unknown]
  - Weight decreased [Unknown]

NARRATIVE: CASE EVENT DATE: 201403
